FAERS Safety Report 7624055-6 (Version None)
Quarter: 2011Q3

REPORT INFORMATION
  Report Type: 
  Country: None (occurrence: None)
  Receive Date: 20110720
  Receipt Date: 20110707
  Transmission Date: 20111222
  Serious: Yes (Hospitalization)
  Sender: FDA-Public Use
  Company Number: PHHY2011US60945

PATIENT
  Sex: Female

DRUGS (15)
  1. DEPAKOTE [Concomitant]
     Dosage: 1250 MG,750 MG IN AM AND 500 MG IN PM
  2. ARICEPT [Concomitant]
     Dosage: 5 MG, QD
     Route: 048
  3. TOPAMAX [Concomitant]
     Dosage: 100 MG, BID
     Route: 048
  4. MIRALAX [Concomitant]
     Dosage: 1 1 TIME PER DAY, 1 CAPFULL
  5. COLACE [Concomitant]
     Dosage: 100 MG, BID
  6. GILENYA [Suspect]
     Indication: PROGRESSIVE MULTIPLE SCLEROSIS
     Dosage: 0.5 MG, QD
     Route: 048
     Dates: start: 20110615
  7. DIFLUCAN [Concomitant]
     Dosage: 200 MG, QD
     Route: 048
  8. EFFEXOR [Concomitant]
     Dosage: 75 MG, TID
     Route: 048
  9. HYDROXYZINE HYDROCHLORIDE [Concomitant]
     Dosage: 25 MG, PRN
     Route: 048
  10. ACYCLOVIR [Concomitant]
     Dosage: 400 MG, TID
     Route: 048
  11. AMBIEN [Concomitant]
     Dosage: 12.5 MG,AT BEDTIME
     Route: 048
  12. FISH OIL [Concomitant]
     Dosage: 300 MG, QD
     Route: 048
  13. LAMOTRIGINE [Concomitant]
     Dosage: 125 MG, 75 MG IN MORNING, 50 MG IN PM
     Route: 048
  14. MULTI-VITAMINS [Concomitant]
     Dosage: 1 DF, QD
     Route: 048
  15. CALCIUM WITH VITAMIN D [Concomitant]
     Dosage: 1 DF, BID
     Route: 048

REACTIONS (12)
  - INCOHERENT [None]
  - SYNCOPE [None]
  - CONFUSIONAL STATE [None]
  - HYPOTENSION [None]
  - WHITE BLOOD CELL COUNT DECREASED [None]
  - SUBDURAL EFFUSION [None]
  - DISORIENTATION [None]
  - DIZZINESS [None]
  - NEUTROPHIL PERCENTAGE INCREASED [None]
  - GAIT DISTURBANCE [None]
  - ASTHENIA [None]
  - EOSINOPHIL COUNT DECREASED [None]
